FAERS Safety Report 5551428-8 (Version None)
Quarter: 2007Q4

REPORT INFORMATION
  Report Type: 
  Country: None (occurrence: None)
  Receive Date: 20071128
  Receipt Date: 20070425
  Transmission Date: 20080405
  Serious: Yes (Other)
  Sender: FDA-Public Use
  Company Number: 2007034967

PATIENT
  Age: 66 Year
  Sex: Male
  Weight: 72.72 kg

DRUGS (2)
  1. LIPITOR [Suspect]
     Indication: LOW DENSITY LIPOPROTEIN INCREASED
     Dosage: 1 IN 1 D
     Dates: start: 19990401, end: 19990901
  2. TORPOL (METOPROLOL) [Concomitant]

REACTIONS (5)
  - BLOOD CHOLESTEROL DECREASED [None]
  - HEPATOCELLULAR DAMAGE [None]
  - HIGH DENSITY LIPOPROTEIN ABNORMAL [None]
  - HIGH DENSITY LIPOPROTEIN DECREASED [None]
  - LOW DENSITY LIPOPROTEIN ABNORMAL [None]
